FAERS Safety Report 14109652 (Version 1)
Quarter: 2017Q4

REPORT INFORMATION
  Report Type: Spontaneous
  Country: US (occurrence: US)
  Receive Date: 20171020
  Receipt Date: 20171020
  Transmission Date: 20180321
  Serious: No
  Sender: FDA-Public Use
  Company Number: US-BIOGEN-2017BI00473549

PATIENT
  Sex: Female

DRUGS (1)
  1. ZINBRYTA [Suspect]
     Active Substance: DACLIZUMAB
     Indication: MULTIPLE SCLEROSIS
     Route: 065
     Dates: start: 20161006, end: 20170301

REACTIONS (9)
  - Gait disturbance [Unknown]
  - Fall [Recovered/Resolved]
  - Feeling abnormal [Unknown]
  - Memory impairment [Unknown]
  - Balance disorder [Unknown]
  - Wound haemorrhage [Unknown]
  - Therapeutic response shortened [Unknown]
  - Anger [Unknown]
  - Frustration tolerance decreased [Unknown]
